FAERS Safety Report 8027290-0 (Version None)
Quarter: 2012Q1

REPORT INFORMATION
  Report Type: 
  Country: None (occurrence: None)
  Receive Date: 20120106
  Receipt Date: 20120104
  Transmission Date: 20120608
  Serious: No
  Sender: FDA-Public Use
  Company Number: US-PFIZER INC-2012003776

PATIENT
  Sex: Male
  Weight: 72.562 kg

DRUGS (1)
  1. CHANTIX [Suspect]
     Indication: SMOKING CESSATION THERAPY
     Dosage: 0.5 MG, UNK
     Route: 048

REACTIONS (7)
  - MALAISE [None]
  - OESOPHAGEAL DISORDER [None]
  - VOMITING [None]
  - DYSPHAGIA [None]
  - HEADACHE [None]
  - GASTRIC DISORDER [None]
  - NAUSEA [None]
